FAERS Safety Report 9167567 (Version 1)
Quarter: 2013Q1

REPORT INFORMATION
  Report Type: Spontaneous
  Country: US (occurrence: US)
  Receive Date: 20130318
  Receipt Date: 20130318
  Transmission Date: 20140127
  Serious: Yes (Other)
  Sender: FDA-Public Use
  Company Number: US-JNJFOC-20130302822

PATIENT
  Age: 67 Year
  Sex: Female
  Weight: 115.67 kg

DRUGS (2)
  1. REMICADE [Suspect]
     Indication: CROHN^S DISEASE
     Route: 042
     Dates: start: 201212
  2. REMICADE [Suspect]
     Indication: CROHN^S DISEASE
     Dosage: 3 TREATMENTS
     Route: 042
     Dates: start: 201302

REACTIONS (2)
  - Peroneal nerve palsy [Not Recovered/Not Resolved]
  - Asthenia [Not Recovered/Not Resolved]
